FAERS Safety Report 5201326-4 (Version None)
Quarter: 2006Q4

REPORT INFORMATION
  Report Type: 
  Country: None (occurrence: None)
  Receive Date: 20061016
  Receipt Date: 20060714
  Transmission Date: 20070319
  Serious: No
  Sender: FDA-Public Use
  Company Number: 2006SP002714

PATIENT
  Age: 47 Year
  Sex: Female
  Weight: 111.5849 kg

DRUGS (4)
  1. LUNESTA [Suspect]
     Indication: INSOMNIA
     Dosage: 3 MG ORAL
     Route: 048
     Dates: start: 20060712
  2. GLUCOPHAGE [Concomitant]
  3. CYMBALTA [Concomitant]
  4. BUPROPION HCL [Concomitant]

REACTIONS (2)
  - DYSGEUSIA [None]
  - INITIAL INSOMNIA [None]
